FAERS Safety Report 11018016 (Version 2)
Quarter: 2015Q2

REPORT INFORMATION
  Report Type: Spontaneous
  Country: US (occurrence: US)
  Receive Date: 20150412
  Receipt Date: 20150524
  Transmission Date: 20150821
  Serious: Yes (Other)
  Sender: FDA-Public Use
  Company Number: US-JNJFOC-20130305447

PATIENT

DRUGS (1)
  1. DOXORUBICIN HYDROCHLORIDE. [Suspect]
     Active Substance: DOXORUBICIN HYDROCHLORIDE
     Indication: BREAST CANCER RECURRENT
     Dosage: STARTED WITH 40 MG/M2 AND STOPPED ESCALATION AT 50 MG/M2 OVER 30 MINUTES
     Route: 042

REACTIONS (3)
  - Neutropenia [Unknown]
  - Wrong technique in drug usage process [Unknown]
  - Leukopenia [Unknown]
